FAERS Safety Report 18753956 (Version 1)
Quarter: 2021Q1

REPORT INFORMATION
  Report Type: Spontaneous
  Country: JP (occurrence: JP)
  Receive Date: 20210119
  Receipt Date: 20210119
  Transmission Date: 20210419
  Serious: Yes (Other)
  Sender: FDA-Public Use
  Company Number: JP-AMGEN-JPNSP2021005430

PATIENT

DRUGS (2)
  1. PITAVASTATIN. [Concomitant]
     Active Substance: PITAVASTATIN CALCIUM
     Indication: HYPERCHOLESTEROLAEMIA
     Dosage: 2 MILLIGRAM, QD
     Route: 065
  2. EVOLOCUMAB [Suspect]
     Active Substance: EVOLOCUMAB
     Indication: HYPERCHOLESTEROLAEMIA
     Dosage: 140 MILLIGRAM
     Route: 058

REACTIONS (2)
  - Adverse event [Unknown]
  - Therapeutic product effect incomplete [Unknown]
